FAERS Safety Report 4801115-6 (Version None)
Quarter: 2005Q4

REPORT INFORMATION
  Report Type: 
  Country: None (occurrence: None)
  Receive Date: 20051017
  Receipt Date: 20051004
  Transmission Date: 20060501
  Serious: Yes (Other)
  Sender: FDA-Public Use
  Company Number: 2005AC01589

PATIENT
  Age: 32 Year
  Sex: Female

DRUGS (7)
  1. LIDOCAINE [Suspect]
  2. DAPSONE [Suspect]
  3. CLINDAMYCIN [Concomitant]
     Route: 042
  4. MIDAZOLAM [Concomitant]
  5. FENTANYL [Concomitant]
  6. PROPOFOL [Concomitant]
  7. NIMBEX [Concomitant]
     Route: 042

REACTIONS (1)
  - OXYGEN SATURATION DECREASED [None]
